FAERS Safety Report 15653680 (Version 1)
Quarter: 2018Q4

REPORT INFORMATION
  Report Type: Spontaneous
  Country: US (occurrence: US)
  Receive Date: 20181122
  Receipt Date: 20181122
  Transmission Date: 20190205
  Serious: Yes (Other)
  Sender: FDA-Public Use
  Company Number: None

PATIENT
  Age: 26 Year
  Sex: Female
  Weight: 63.5 kg

DRUGS (1)
  1. MIRENA [Suspect]
     Active Substance: LEVONORGESTREL

REACTIONS (9)
  - Fatigue [None]
  - Abdominal distension [None]
  - Post procedural complication [None]
  - Hallucination, visual [None]
  - Suicidal ideation [None]
  - Dysmenorrhoea [None]
  - Depressed mood [None]
  - Menorrhagia [None]
  - Dizziness postural [None]

NARRATIVE: CASE EVENT DATE: 20181101
